FAERS Safety Report 11969397 (Version 1)
Quarter: 2016Q1

REPORT INFORMATION
  Report Type: Spontaneous
  Country: CH (occurrence: CH)
  Receive Date: 20160128
  Receipt Date: 20160128
  Transmission Date: 20160526
  Serious: Yes (Other)
  Sender: FDA-Public Use
  Company Number: CH-NOVOPROD-474249

PATIENT
  Age: 9 Year
  Sex: Female

DRUGS (2)
  1. ACTRAPID [Suspect]
     Active Substance: INSULIN HUMAN
     Indication: TYPE 1 DIABETES MELLITUS
     Dosage: 3.5 U, QD (2 U IN THE MORNING AND 1.5 U IN THE EVENING)
     Route: 058
     Dates: start: 20150403
  2. INSULATARD HM PENFILL [Suspect]
     Active Substance: INSULIN NOS
     Indication: TYPE 1 DIABETES MELLITUS
     Dosage: 4.5 U, QD (2.5 U IN THE MORNING AND 2 U IN THE EVENING)
     Route: 058
     Dates: start: 20150403

REACTIONS (3)
  - Anxiety [Unknown]
  - Aggression [Unknown]
  - Injection site pain [Unknown]
